FAERS Safety Report 15318952 (Version 1)
Quarter: 2018Q3

REPORT INFORMATION
  Report Type: Spontaneous
  Country: US (occurrence: US)
  Receive Date: 20180820
  Receipt Date: 20180820
  Transmission Date: 20181010
  Serious: No
  Sender: FDA-Public Use
  Company Number: None

PATIENT

DRUGS (2)
  1. LEUCOVORIN. [Suspect]
     Active Substance: LEUCOVORIN
  2. OXALIPLATIN. [Suspect]
     Active Substance: OXALIPLATIN

REACTIONS (6)
  - Dyspnoea [None]
  - Pruritus generalised [None]
  - Chest discomfort [None]
  - Erythema [None]
  - Tension [None]
  - Throat irritation [None]
